FAERS Safety Report 9815804 (Version 3)
Quarter: 2014Q1

REPORT INFORMATION
  Report Type: Spontaneous
  Country: US (occurrence: US)
  Receive Date: 20140114
  Receipt Date: 20140318
  Transmission Date: 20141002
  Serious: Yes (Death, Other)
  Sender: FDA-Public Use
  Company Number: US-ASTELLAS-2013US012760

PATIENT
  Age: 85 Year
  Sex: Male

DRUGS (1)
  1. [NO SUSPECT PRODUCT] [Suspect]
     Dosage: UNK

REACTIONS (3)
  - Death [Fatal]
  - Malignant neoplasm progression [Not Recovered/Not Resolved]
  - Dysphagia [Unknown]
